FAERS Safety Report 11672393 (Version 1)
Quarter: 2015Q4

REPORT INFORMATION
  Report Type: Spontaneous
  Country: US (occurrence: US)
  Receive Date: 20151028
  Receipt Date: 20151028
  Transmission Date: 20160304
  Serious: No
  Sender: FDA-Public Use
  Company Number: US-BAYER-2015-454135

PATIENT
  Age: 83 Year
  Sex: Female
  Weight: 74.83 kg

DRUGS (4)
  1. CLARITIN [Suspect]
     Active Substance: LORATADINE
     Indication: RHINORRHOEA
     Dosage: 1 DF, QD
     Route: 048
     Dates: start: 20151025
  2. KEPPRA [Concomitant]
     Active Substance: LEVETIRACETAM
     Dosage: UNK
     Route: 065
     Dates: start: 201412
  3. TEGRETOL [Concomitant]
     Active Substance: CARBAMAZEPINE
     Dosage: UNK
     Dates: start: 201412
  4. CLARITIN [Suspect]
     Active Substance: LORATADINE
     Indication: LACRIMATION INCREASED

REACTIONS (1)
  - Drug ineffective [None]

NARRATIVE: CASE EVENT DATE: 20151025
